FAERS Safety Report 4544543-9 (Version None)
Quarter: 2005Q1

REPORT INFORMATION
  Report Type: 
  Country: None (occurrence: None)
  Receive Date: 20050105
  Receipt Date: 20041130
  Transmission Date: 20050727
  Serious: Yes (Life-Threatening, Hospitalization)
  Sender: FDA-Public Use
  Company Number: PHBS2004FI15975

PATIENT
  Age: 44 Year
  Sex: Female

DRUGS (4)
  1. LEPONEX [Suspect]
     Route: 048
     Dates: start: 20040914, end: 20041125
  2. NOVOMIX [Concomitant]
     Dates: start: 20041113
  3. LAXOBERON [Concomitant]
     Route: 048
     Dates: start: 20041105
  4. LEVOLAC [Concomitant]
     Route: 048
     Dates: start: 20041027

REACTIONS (10)
  - AGRANULOCYTOSIS [None]
  - C-REACTIVE PROTEIN INCREASED [None]
  - FUNGAL SKIN INFECTION [None]
  - LOCALISED OEDEMA [None]
  - LYMPHADENOPATHY [None]
  - NEUTROPENIA [None]
  - PLATELET COUNT INCREASED [None]
  - PYREXIA [None]
  - UROSEPSIS [None]
  - WHITE BLOOD CELL COUNT DECREASED [None]
